FAERS Safety Report 21453808 (Version 1)
Quarter: 2022Q4

REPORT INFORMATION
  Report Type: Spontaneous
  Country: US (occurrence: US)
  Receive Date: 20221013
  Receipt Date: 20221013
  Transmission Date: 20230112
  Serious: No
  Sender: FDA-Public Use
  Company Number: US-ABBVIE-4153601

PATIENT
  Age: 48 Year
  Sex: Female
  Weight: 75.296 kg

DRUGS (4)
  1. MAVYRET [Suspect]
     Active Substance: GLECAPREVIR\PIBRENTASVIR
     Indication: Hepatitis C
     Dosage: 300MG/120MG
     Route: 048
     Dates: start: 202208
  2. TYLENOL [Concomitant]
     Active Substance: ACETAMINOPHEN
     Indication: Headache
  3. MOTRIN [Concomitant]
     Active Substance: IBUPROFEN
     Indication: Headache
  4. VITAMIN D [Concomitant]
     Active Substance: VITAMIN D NOS
     Indication: Product used for unknown indication

REACTIONS (1)
  - Headache [Not Recovered/Not Resolved]

NARRATIVE: CASE EVENT DATE: 20220801
